FAERS Safety Report 7064040 (Version 3)
Quarter: 2014Q2

REPORT INFORMATION
  Report Type: Spontaneous
  Country: US (occurrence: US)
  Receive Date: 20090727
  Receipt Date: 20140416
  Transmission Date: 20141212
  Serious: Yes (Other)
  Sender: FDA-Public Use
  Company Number: US-ALEXION-A200900508

PATIENT
  Age: 66 Year
  Sex: Female

DRUGS (7)
  1. SOLIRIS [Suspect]
     Indication: PAROXYSMAL NOCTURNAL HAEMOGLOBINURIA
     Dosage: 600 MG, QW X4
     Route: 042
     Dates: start: 20081201, end: 20081222
  2. SOLIRIS [Suspect]
     Dosage: 900 MG, Q2W
     Route: 042
     Dates: start: 20081229, end: 20090602
  3. METOPROLOL [Concomitant]
     Dosage: UNK
     Route: 048
  4. PLAVIX                             /01220701/ [Concomitant]
     Dosage: UNK
     Route: 048
     Dates: end: 200906
  5. ASPIRIN [Concomitant]
     Dosage: 81 MG, QD
     Route: 048
  6. VITAMIN B6 [Concomitant]
     Dosage: UNK
     Route: 048
  7. PRANDIN                            /00882701/ [Concomitant]
     Dosage: UNK
     Route: 048
     Dates: end: 200903

REACTIONS (6)
  - Aplastic anaemia [Unknown]
  - Blood product transfusion dependent [Not Recovered/Not Resolved]
  - Reticulocyte count increased [Unknown]
  - Drug ineffective [Unknown]
  - Haemoglobin decreased [Unknown]
  - Fatigue [Unknown]
